FAERS Safety Report 5938788-0 (Version None)
Quarter: 2008Q4

REPORT INFORMATION
  Report Type: 
  Country: None (occurrence: None)
  Receive Date: 20081103
  Receipt Date: 20080819
  Transmission Date: 20090506
  Serious: No
  Sender: FDA-Public Use
  Company Number: PR-BAYER-200831574NA

PATIENT
  Sex: Female

DRUGS (1)
  1. ULTRAVIST (PHARMACY BULK) [Suspect]
     Indication: COMPUTERISED TOMOGRAM ABDOMEN
     Dosage: TOTAL DAILY DOSE: 90 ML  UNIT DOSE: 500 ML
     Route: 042
     Dates: start: 20080804, end: 20080804

REACTIONS (3)
  - COUGH [None]
  - DYSPNOEA [None]
  - NASAL CONGESTION [None]
